FAERS Safety Report 17449107 (Version 1)
Quarter: 2020Q1

REPORT INFORMATION
  Report Type: Spontaneous
  Country: US (occurrence: US)
  Receive Date: 20200224
  Receipt Date: 20200224
  Transmission Date: 20200409
  Serious: Yes (Other)
  Sender: FDA-Public Use
  Company Number: US-AUROBINDO-AUR-APL-2019-045889

PATIENT
  Age: 70 Year
  Sex: Female
  Weight: 54.4 kg

DRUGS (1)
  1. CEFDINIR CAPSULES 300 MG [Suspect]
     Active Substance: CEFDINIR
     Indication: PRODUCT USED FOR UNKNOWN INDICATION
     Dosage: 300 MILLIGRAM, TWO TIMES A DAY
     Route: 065
     Dates: start: 20190704, end: 20190714

REACTIONS (4)
  - Oral mucosal eruption [Unknown]
  - Stevens-Johnson syndrome [Unknown]
  - Rash [Unknown]
  - Pharyngeal swelling [Unknown]

NARRATIVE: CASE EVENT DATE: 20190715
